FAERS Safety Report 8651251 (Version 2)
Quarter: 2013Q2

REPORT INFORMATION
  Report Type: Spontaneous
  Country: JP (occurrence: JP)
  Receive Date: 20120705
  Receipt Date: 20130513
  Transmission Date: 20140414
  Serious: Yes (Life-Threatening, Hospitalization)
  Sender: FDA-Public Use
  Company Number: JP-SANOFI-AVENTIS-2012SA046572

PATIENT
  Age: 39 Year
  Sex: Female
  Weight: 73.5 kg

DRUGS (5)
  1. LANTUS [Suspect]
     Indication: TYPE 1 DIABETES MELLITUS
     Dosage: 14 UNITS IN MORNING AND 3 UNITS BEFORE BED TIME
     Route: 058
     Dates: start: 20100612, end: 20111025
  2. NOVORAPID [Concomitant]
     Indication: TYPE 1 DIABETES MELLITUS
     Dosage: 9 UNITS-8 UNITS-7 UNITS
     Route: 058
     Dates: start: 20100612, end: 20100717
  3. APIDRA INJ SOLOSTAR [Concomitant]
     Indication: TYPE 1 DIABETES MELLITUS
     Dosage: 7 UNITS-8 UNITS-7UNITS
     Route: 058
     Dates: start: 20100717
  4. SOLOSTAR [Concomitant]
     Indication: TYPE 1 DIABETES MELLITUS
     Route: 058
     Dates: start: 20100717
  5. INSULIN HUMAN [Concomitant]
     Indication: TYPE 1 DIABETES MELLITUS
     Dosage: DOSE:3 UNIT(S)
     Route: 058
     Dates: start: 20100612

REACTIONS (3)
  - Breast cancer [Recovering/Resolving]
  - Breast discharge [Recovering/Resolving]
  - Breast mass [Recovering/Resolving]
